FAERS Safety Report 4903365-7 (Version None)
Quarter: 2006Q1

REPORT INFORMATION
  Report Type: 
  Country: None (occurrence: None)
  Receive Date: 20060206
  Receipt Date: 20060206
  Transmission Date: 20060701
  Serious: Yes (Hospitalization)
  Sender: FDA-Public Use
  Company Number: None

PATIENT
  Age: 66 Year
  Sex: Male

DRUGS (10)
  1. OLMESARTAN [Suspect]
     Dosage: 20 MG DAILY PO
     Route: 048
  2. TACROLIMUS [Concomitant]
  3. NEURONTIN [Concomitant]
  4. ZANTAC [Concomitant]
  5. LEXAPRO [Concomitant]
  6. INSULIN [Concomitant]
  7. URSODIOL [Concomitant]
  8. DITROPAN [Concomitant]
  9. CIPRO [Concomitant]
  10. ESCITALOPRAM OXALATE [Concomitant]

REACTIONS (8)
  - DIZZINESS [None]
  - DRUG LEVEL DECREASED [None]
  - NAUSEA [None]
  - ORAL INTAKE REDUCED [None]
  - RENAL FAILURE ACUTE [None]
  - RENAL TUBULAR ACIDOSIS [None]
  - VISION BLURRED [None]
  - VOMITING [None]
